FAERS Safety Report 7801967-1 (Version None)
Quarter: 2011Q4

REPORT INFORMATION
  Report Type: 
  Country: None (occurrence: None)
  Receive Date: 20111005
  Receipt Date: 20110922
  Transmission Date: 20120403
  Serious: Yes (Hospitalization, Other)
  Sender: FDA-Public Use
  Company Number: 2011-2886

PATIENT
  Sex: Female

DRUGS (3)
  1. DYSPORT [Suspect]
     Indication: OFF LABEL USE
     Dosage: 40 UNITS (40 UNITS, SINGLE CYCLE), SUBCUTANEOUS
     Route: 058
     Dates: start: 20111008, end: 20111008
  2. DYSPORT [Suspect]
     Indication: SKIN WRINKLING
     Dosage: 40 UNITS (40 UNITS, SINGLE CYCLE), SUBCUTANEOUS
     Route: 058
     Dates: start: 20111008, end: 20111008
  3. DYSPORT [Suspect]
     Indication: SKIN COSMETIC PROCEDURE
     Dosage: 40 UNITS (40 UNITS, SINGLE CYCLE), SUBCUTANEOUS
     Route: 058
     Dates: start: 20111008, end: 20111008

REACTIONS (4)
  - PRODUCT QUALITY ISSUE [None]
  - DRUG INEFFECTIVE [None]
  - CELLULITIS [None]
  - SCAB [None]
